FAERS Safety Report 6902523-X (Version None)
Quarter: 2010Q3

REPORT INFORMATION
  Report Type: 
  Country: None (occurrence: None)
  Receive Date: 20100730
  Receipt Date: 20100720
  Transmission Date: 20110219
  Serious: Yes (Other)
  Sender: FDA-Public Use
  Company Number: 2010MA001055

PATIENT
  Age: 69 Year
  Sex: Female

DRUGS (4)
  1. TRAMADOL HYDROCHLORIDE [Suspect]
     Indication: NEUROPATHY PERIPHERAL
     Dosage: 50 MG; QD
     Dates: start: 20090101
  2. FEVERALL [Suspect]
     Indication: PAIN
     Dosage: 1000 MG; PRN
     Dates: start: 20080101
  3. CON MEDS [Concomitant]
  4. PREV MEDS [Concomitant]

REACTIONS (3)
  - CORNEAL DISORDER [None]
  - DRY EYE [None]
  - NEUROPATHY PERIPHERAL [None]
